FAERS Safety Report 5967672-1 (Version None)
Quarter: 2008Q4

REPORT INFORMATION
  Report Type: 
  Country: None (occurrence: None)
  Receive Date: 20081126
  Receipt Date: 20081119
  Transmission Date: 20090506
  Serious: Yes (Death, Other)
  Sender: FDA-Public Use
  Company Number: PHEH2008US09877

PATIENT
  Sex: Male

DRUGS (3)
  1. SANDOSTATIN LAR [Suspect]
     Indication: CARCINOID TUMOUR OF THE SMALL BOWEL
     Dosage: 60 MG, EVERY 4WEEKS
  2. LOMOTIL [Concomitant]
     Indication: DIARRHOEA
     Dosage: 1-2 TABS EVERY 4-6 HOURS
  3. LASIX [Concomitant]
     Indication: OEDEMA PERIPHERAL
     Dosage: UNK
     Dates: start: 20071001

REACTIONS (9)
  - CARDIAC MURMUR [None]
  - DIARRHOEA [None]
  - DYSPNOEA EXERTIONAL [None]
  - FATIGUE [None]
  - HEPATOMEGALY [None]
  - MALIGNANT NEOPLASM PROGRESSION [None]
  - OEDEMA PERIPHERAL [None]
  - PORTAL VEIN THROMBOSIS [None]
  - PULSE WAVEFORM ABNORMAL [None]
